FAERS Safety Report 12648575 (Version 2)
Quarter: 2016Q3

REPORT INFORMATION
  Report Type: Spontaneous
  Country: CH (occurrence: CH)
  Receive Date: 20160812
  Receipt Date: 20160816
  Transmission Date: 20161109
  Serious: Yes (Death)
  Sender: FDA-Public Use
  Company Number: CH-SA-2016SA145768

PATIENT
  Age: 34 Year
  Sex: Female
  Weight: 54 kg

DRUGS (5)
  1. MIRTAZAPINE. [Concomitant]
     Active Substance: MIRTAZAPINE
  2. ANAPEN [Suspect]
     Active Substance: EPINEPHRINE
     Indication: SUICIDE ATTEMPT
     Dosage: 2 INJECTIONS EACH ANAPEN AUTO-INJECTOR 0.15 MG OF ADRENALINE IN 0.3 ML SOLUTION
     Route: 065
  3. PRAZEPAM [Concomitant]
     Active Substance: PRAZEPAM
  4. CYAMEMAZINE [Concomitant]
     Active Substance: CYAMEMAZINE
  5. CITALOPRAM [Concomitant]
     Active Substance: CITALOPRAM HYDROBROMIDE

REACTIONS (10)
  - Completed suicide [None]
  - Hepatic congestion [None]
  - Emphysema [None]
  - Arrhythmia [Fatal]
  - Cardiomegaly [None]
  - Brain oedema [None]
  - Cardiac arrest [Fatal]
  - Injection site haemorrhage [Not Recovered/Not Resolved]
  - Pulmonary oedema [None]
  - Pulmonary congestion [None]
